FAERS Safety Report 18626444 (Version 2)
Quarter: 2020Q4

REPORT INFORMATION
  Report Type: Spontaneous
  Country: AU (occurrence: AU)
  Receive Date: 20201217
  Receipt Date: 20201222
  Transmission Date: 20210114
  Serious: Yes (Other)
  Sender: FDA-Public Use
  Company Number: AU-009507513-2012AUS007722

PATIENT
  Age: 87 Year
  Sex: Male

DRUGS (13)
  1. PERINDOPRIL [Suspect]
     Active Substance: PERINDOPRIL
     Dosage: UNK
  2. BUPRENORPHINE HYDROCHLORIDE. [Suspect]
     Active Substance: BUPRENORPHINE HYDROCHLORIDE
     Dosage: UNK
  3. THIAMINE HYDROCHLORIDE. [Suspect]
     Active Substance: THIAMINE HYDROCHLORIDE
     Dosage: UNK
  4. ALLOPURINOL. [Suspect]
     Active Substance: ALLOPURINOL
     Dosage: UNK
  5. ASPIRIN. [Suspect]
     Active Substance: ASPIRIN
     Dosage: UNK
  6. ALBUTEROL. [Suspect]
     Active Substance: ALBUTEROL
     Dosage: UNK
  7. TIOTROPIUM BROMIDE [Suspect]
     Active Substance: TIOTROPIUM BROMIDE
     Dosage: UNK
  8. OXYCODONE [Suspect]
     Active Substance: OXYCODONE
     Dosage: UNK
  9. RISPERIDONE. [Suspect]
     Active Substance: RISPERIDONE
     Dosage: UNK
  10. MIRTAZAPINE. [Suspect]
     Active Substance: MIRTAZAPINE
     Dosage: UNK
  11. VALPROATE SODIUM. [Suspect]
     Active Substance: VALPROATE SODIUM
     Dosage: UNK
  12. ATORVASTATIN [Suspect]
     Active Substance: ATORVASTATIN
     Dosage: UNK
  13. ACETAMINOPHEN. [Suspect]
     Active Substance: ACETAMINOPHEN
     Dosage: UNK

REACTIONS (43)
  - Delirium [Unknown]
  - Muscle rigidity [Unknown]
  - Sarcopenia [Unknown]
  - Product prescribing issue [Unknown]
  - Sepsis [Unknown]
  - Aptyalism [Unknown]
  - Decreased gait velocity [Unknown]
  - Dysphagia [Unknown]
  - Muscle contracture [Unknown]
  - Weight decreased [Unknown]
  - Seizure [Unknown]
  - Asthenia [Unknown]
  - Condition aggravated [Unknown]
  - Fall [Unknown]
  - Sedation [Unknown]
  - Extrapyramidal disorder [Unknown]
  - Hunger [Unknown]
  - Living alone [Unknown]
  - Malnutrition [Unknown]
  - Muscular weakness [Unknown]
  - Dizziness postural [Unknown]
  - Muscle atrophy [Unknown]
  - Depressed level of consciousness [Unknown]
  - Dystonia [Unknown]
  - Hallucination [Unknown]
  - Cognitive disorder [Unknown]
  - Communication disorder [Unknown]
  - Depression [Unknown]
  - Dyspnoea [Unknown]
  - General physical health deterioration [Unknown]
  - Mastication disorder [Unknown]
  - Mobility decreased [Unknown]
  - Feeding disorder [Unknown]
  - Ligament sprain [Unknown]
  - Rib fracture [Unknown]
  - Urinary tract infection [Unknown]
  - Cachexia [Unknown]
  - Dementia with Lewy bodies [Unknown]
  - Tardive dyskinesia [Unknown]
  - Balance disorder [Unknown]
  - Cerebellar ataxia [Unknown]
  - Ecchymosis [Unknown]
  - Joint injury [Unknown]
